FAERS Safety Report 7624471-2 (Version None)
Quarter: 2011Q3

REPORT INFORMATION
  Report Type: 
  Country: None (occurrence: None)
  Receive Date: 20110720
  Receipt Date: 20110711
  Transmission Date: 20111222
  Serious: Yes (Hospitalization)
  Sender: FDA-Public Use
  Company Number: FR-ASTRAZENECA-2011SE41030

PATIENT
  Age: 28692 Day
  Sex: Female

DRUGS (11)
  1. MYOLASTAN [Concomitant]
  2. COLTRAMYL [Concomitant]
  3. MORPHINE SULFATE [Concomitant]
  4. MORPHINE SULFATE [Concomitant]
  5. PROTELOS [Concomitant]
  6. FORLAX [Concomitant]
  7. ARIMIDEX [Suspect]
     Indication: BREAST CANCER
     Route: 048
     Dates: start: 20090401
  8. PRETERAX [Concomitant]
     Dates: start: 20110101
  9. BISPHOSPHONATE [Concomitant]
     Indication: OSTEOPOROSIS
     Dates: start: 20060101
  10. ENTEROCOR [Concomitant]
  11. PREVISCAN [Concomitant]

REACTIONS (1)
  - SPINAL COMPRESSION FRACTURE [None]
